FAERS Safety Report 6958020-9 (Version None)
Quarter: 2010Q3

REPORT INFORMATION
  Report Type: 
  Country: None (occurrence: None)
  Receive Date: 20100831
  Receipt Date: 20100823
  Transmission Date: 20110219
  Serious: Yes (Life-Threatening, Hospitalization, Other)
  Sender: FDA-Public Use
  Company Number: FR-BRISTOL-MYERS SQUIBB COMPANY-15258114

PATIENT
  Age: 46 Year
  Sex: Female

DRUGS (16)
  1. GLUCOPHAGE [Suspect]
     Route: 048
  2. VICTOZA [Suspect]
     Indication: TYPE 2 DIABETES MELLITUS
     Dosage: 1DF=6MG/ML SOLN FOR INJ
     Route: 058
     Dates: start: 20100618, end: 20100628
  3. ACTRAPID [Concomitant]
  4. INSULATARD [Concomitant]
     Dosage: INJECTION
  5. FUROSEMIDE [Concomitant]
  6. LOGIMAX [Concomitant]
     Dosage: PROLONGED RELEASE ABLET
  7. RAMIPRIL [Concomitant]
  8. VALSARTAN  AND HYDROCHLOROTHIAZIDE [Concomitant]
     Dosage: TAB
  9. KARDEGIC [Concomitant]
     Dosage: POWDER + SOLVENT FOR ORAL SOLUTION
  10. VASTAREL [Concomitant]
     Dosage: MODIFIED RELEASE TABLET
  11. KALEORID [Concomitant]
     Dosage: PROLONGED RELEASE TABLET
  12. TAHOR [Concomitant]
     Dosage: TABLET
  13. ALLOPURINOL [Concomitant]
  14. LEVOTHYROXINE SODIUM [Concomitant]
     Dosage: TABLET
  15. NEXIUM [Concomitant]
     Dosage: GASTRO RESISTANT TABLET
  16. NITRODERM [Concomitant]

REACTIONS (5)
  - DIARRHOEA [None]
  - LACTIC ACIDOSIS [None]
  - RENAL FAILURE ACUTE [None]
  - SHOCK [None]
  - VOMITING [None]
